FAERS Safety Report 9102365 (Version 2)
Quarter: 2013Q3

REPORT INFORMATION
  Report Type: Report from Study
  Country: GB (occurrence: GB)
  Receive Date: 20130218
  Receipt Date: 20130920
  Transmission Date: 20140515
  Serious: Yes (Death, Hospitalization, Other)
  Sender: FDA-Public Use
  Company Number: GB-ROCHE-603913

PATIENT
  Age: 62 Year
  Sex: Female
  Weight: 86 kg

DRUGS (18)
  1. RITUXIMAB [Suspect]
     Indication: RHEUMATOID ARTHRITIS
     Dosage: LAST DOSE PRIOR TO SAE: 11/APR/2012
     Route: 065
  2. IBANDRONIC ACID [Concomitant]
     Route: 048
  3. AMITRIPTYLINE [Concomitant]
     Dosage: REPORTED AS AMITRYPTALINE. DOSAGE 200 MG NOCTE
     Route: 065
  4. LEFLUNOMIDE [Concomitant]
     Route: 065
  5. PREDNISOLONE [Concomitant]
     Route: 065
  6. ACTONEL [Concomitant]
  7. DF 118 [Concomitant]
  8. MOBIC [Concomitant]
  9. CYCLOPHOSPHAMIDE [Concomitant]
     Route: 065
     Dates: start: 20050615, end: 20050915
  10. CYCLOSPORINE [Concomitant]
     Route: 065
     Dates: start: 20040815, end: 20050515
  11. OMEPRAZOLE [Concomitant]
     Route: 065
  12. TEMAZEPAM [Concomitant]
     Route: 065
  13. CALCICHEW D3 FORTE [Concomitant]
  14. QUININE SULFATE [Concomitant]
     Route: 065
  15. PIRITON [Concomitant]
     Route: 065
  16. PARACETAMOL [Concomitant]
     Route: 048
  17. BISOPROLOL [Concomitant]
     Route: 048
  18. FENTANYL PATCH [Concomitant]
     Route: 065

REACTIONS (12)
  - Bronchopneumonia [Fatal]
  - Tibia fracture [Unknown]
  - Wound infection [Unknown]
  - Renal impairment [Unknown]
  - Pneumonia [Unknown]
  - Respiratory failure [Unknown]
  - Interstitial lung disease [Unknown]
  - Pulmonary hypertension [Unknown]
  - Tricuspid valve incompetence [Unknown]
  - Atrial fibrillation [Unknown]
  - Oral bacterial infection [Unknown]
  - Right ventricular failure [Unknown]
